FAERS Safety Report 12172041 (Version 1)
Quarter: 2016Q1

REPORT INFORMATION
  Report Type: Spontaneous
  Country: US (occurrence: US)
  Receive Date: 20160311
  Receipt Date: 20160311
  Transmission Date: 20160526
  Serious: Yes (Hospitalization, Other)
  Sender: FDA-Public Use
  Company Number: US-GLAXOSMITHKLINE-US2016GSK034280

PATIENT
  Age: 49 Year
  Sex: Female

DRUGS (1)
  1. COREG CR [Suspect]
     Active Substance: CARVEDILOL PHOSPHATE
     Indication: MYOCARDIAL INFARCTION
     Dosage: 80 MG, U
     Dates: start: 20081126

REACTIONS (4)
  - Coronary artery occlusion [Unknown]
  - Stent placement [Unknown]
  - Myocardial infarction [Unknown]
  - Surgery [Unknown]

NARRATIVE: CASE EVENT DATE: 2008
